FAERS Safety Report 24624034 (Version 1)
Quarter: 2024Q4

REPORT INFORMATION
  Report Type: Spontaneous
  Country: US (occurrence: None)
  Receive Date: 20241115
  Receipt Date: 20241115
  Transmission Date: 20250114
  Serious: Yes (Death, Life-Threatening)
  Sender: Public
  Company Number: None

PATIENT
  Age: 49 Year
  Sex: Female

DRUGS (1)
  1. IOXAGLATE MEGLUMINE [Suspect]
     Active Substance: IOXAGLATE MEGLUMINE
     Indication: Angiogram
     Dates: start: 20240823, end: 20240823

REACTIONS (8)
  - Agitation [None]
  - Anaphylactic reaction [None]
  - Anxiety [None]
  - Contrast media reaction [None]
  - Angioedema [None]
  - Dysphonia [None]
  - Speech disorder [None]
  - Throat tightness [None]

NARRATIVE: CASE EVENT DATE: 20240823
